FAERS Safety Report 7240218-6 (Version None)
Quarter: 2011Q1

REPORT INFORMATION
  Report Type: 
  Country: None (occurrence: None)
  Receive Date: 20110124
  Receipt Date: 20110112
  Transmission Date: 20110831
  Serious: Yes (Other)
  Sender: FDA-Public Use
  Company Number: US-CELGENEUS-163-20785-11011764

PATIENT
  Sex: Female

DRUGS (7)
  1. THALOMID [Suspect]
     Dosage: 100-150MG
     Route: 048
     Dates: start: 20050201
  2. THALOMID [Suspect]
     Route: 048
     Dates: start: 20100501
  3. THALOMID [Suspect]
     Route: 048
     Dates: start: 20061201
  4. THALOMID [Suspect]
     Route: 048
     Dates: start: 20090201
  5. THALOMID [Suspect]
     Indication: MULTIPLE MYELOMA
     Route: 048
     Dates: start: 20041101
  6. THALOMID [Suspect]
     Route: 048
     Dates: start: 20050801
  7. THALOMID [Suspect]
     Route: 048
     Dates: start: 20080801

REACTIONS (1)
  - DEMENTIA ALZHEIMER'S TYPE [None]
